FAERS Safety Report 13337670 (Version 1)
Quarter: 2017Q1

REPORT INFORMATION
  Report Type: Spontaneous
  Country: MA (occurrence: MA)
  Receive Date: 20170315
  Receipt Date: 20170315
  Transmission Date: 20170428
  Serious: Yes (Other)
  Sender: FDA-Public Use
  Company Number: MA-GLENMARK PHARMACEUTICALS-2017GMK026713

PATIENT
  Age: 61 Year
  Sex: Male

DRUGS (1)
  1. METFORMIN HYDROCHLORIDE. [Suspect]
     Active Substance: METFORMIN HYDROCHLORIDE
     Indication: TYPE 2 DIABETES MELLITUS
     Dosage: 2 G, QOD
     Route: 065

REACTIONS (3)
  - Toxic skin eruption [Recovered/Resolved]
  - Psoriasis [Recovered/Resolved]
  - Drug eruption [Recovered/Resolved]
